FAERS Safety Report 4871540-6 (Version None)
Quarter: 2005Q4

REPORT INFORMATION
  Report Type: 
  Country: None (occurrence: None)
  Receive Date: 20051230
  Receipt Date: 20051214
  Transmission Date: 20060501
  Serious: Yes (Other)
  Sender: FDA-Public Use
  Company Number: DE-2005-026851

PATIENT
  Sex: Female
  Weight: 72 kg

DRUGS (3)
  1. BETAFERON (INTERFERON BETA-1B) INJECTION, 250UG [Suspect]
     Indication: MULTIPLE SCLEROSIS
     Dosage: EVERY 2D, SUBCUTANEOUS
     Route: 058
     Dates: start: 20000101
  2. LIORESAL ^NOVARTIS^ [Concomitant]
  3. TEGRETOL [Concomitant]

REACTIONS (4)
  - DECUBITUS ULCER [None]
  - INJECTION SITE NECROSIS [None]
  - SKIN FRAGILITY [None]
  - SKIN NECROSIS [None]
